FAERS Safety Report 9268008 (Version 1)
Quarter: 2013Q2

REPORT INFORMATION
  Report Type: Spontaneous
  Country: US (occurrence: US)
  Receive Date: 20130502
  Receipt Date: 20130502
  Transmission Date: 20140414
  Serious: No
  Sender: FDA-Public Use
  Company Number: US-ALEXION-A201201501

PATIENT
  Age: 11 Year
  Sex: Female
  Weight: 60 kg

DRUGS (4)
  1. SOLIRIS 300MG [Suspect]
     Indication: HAEMOLYTIC URAEMIC SYNDROME
     Dosage: 900 MG, QW
     Route: 042
     Dates: start: 20120720
  2. METOPROLOL [Concomitant]
     Indication: HYPERTENSION
     Dosage: 200 MG, BID
     Route: 048
  3. AMLODIPINE [Concomitant]
     Indication: HYPERTENSION
     Dosage: 5 MG, BID
     Route: 048
  4. VITAMIN D NOS [Concomitant]
     Indication: DIALYSIS
     Dosage: UNK QW
     Route: 042

REACTIONS (1)
  - Incorrect dose administered [Recovered/Resolved]
